FAERS Safety Report 8207531-7 (Version None)
Quarter: 2012Q1

REPORT INFORMATION
  Report Type: 
  Country: None (occurrence: None)
  Receive Date: 20120314
  Receipt Date: 20120305
  Transmission Date: 20120608
  Serious: Yes (Death)
  Sender: FDA-Public Use
  Company Number: DE-BRISTOL-MYERS SQUIBB COMPANY-16431785

PATIENT
  Age: 75 Year
  Sex: Male
  Weight: 90 kg

DRUGS (10)
  1. LEUCOVORIN CALCIUM [Suspect]
     Indication: COLORECTAL CANCER METASTATIC
     Dosage: RECENT DOSE ON 07-FEB-2012.
     Route: 042
     Dates: start: 20110915, end: 20120207
  2. ACTRAPHANE [Concomitant]
     Dosage: 1 DF=50/50 20-13-0 I.E ,30/30 0-0-24 I.E
  3. FLUOROURACIL [Suspect]
     Indication: COLORECTAL CANCER METASTATIC
     Dosage: 3600MG:IV,15SEP2011;600MG:IV BOLUS,07FEB12; RECENT DOSE ON 07-FEB-2012.
     Route: 042
     Dates: start: 20110915, end: 20120207
  4. AMLODIPINE [Concomitant]
     Indication: HYPERTENSION
     Dosage: 5,1-0-0
     Route: 048
  5. ONDANSETRON [Concomitant]
  6. CETUXIMAB [Suspect]
     Indication: COLORECTAL CANCER METASTATIC
     Dosage: RECENT DOSE ON 07-FEB-2012.
     Route: 042
     Dates: start: 20110915, end: 20120207
  7. IRINOTECAN HCL [Suspect]
     Indication: COLORECTAL CANCER METASTATIC
     Dosage: RECENT DOSE ON 07-FEB-2012.
     Route: 042
     Dates: start: 20110915, end: 20120207
  8. ACETYLSALICYLIC ACID SRT [Concomitant]
     Indication: ATRIAL FLUTTER
     Route: 048
  9. PANTOPRAZOLE [Concomitant]
     Indication: GASTRITIS
     Route: 048
  10. DEXAMETHASONE [Concomitant]

REACTIONS (1)
  - DEATH [None]
